FAERS Safety Report 4678486-7 (Version None)
Quarter: 2005Q2

REPORT INFORMATION
  Report Type: 
  Country: None (occurrence: None)
  Receive Date: 20050531
  Receipt Date: 20050531
  Transmission Date: 20051028
  Serious: Yes (Death)
  Sender: FDA-Public Use
  Company Number: None

PATIENT
  Age: 62 Year
  Sex: Female
  Weight: 47 kg

DRUGS (17)
  1. COUMADIN [Suspect]
     Indication: CEREBROVASCULAR ACCIDENT
     Dosage: ON HOLD / UNKNOWN
     Route: 065
     Dates: end: 20040910
  2. COUMADIN [Suspect]
     Indication: COAGULOPATHY
     Dosage: ON HOLD / UNKNOWN
     Route: 065
     Dates: end: 20040910
  3. LOPRESSOR [Concomitant]
  4. MORPHINE [Concomitant]
  5. DIFLUCAN [Concomitant]
  6. HYDRALAZINE [Concomitant]
  7. ZOSYN [Concomitant]
  8. VANCO [Concomitant]
  9. ZYVOX [Concomitant]
  10. AMIKACIN [Concomitant]
  11. DAKIN'S SOLN [Concomitant]
  12. DIFLUCAN [Concomitant]
  13. KAYEXALATE [Concomitant]
  14. REGLAN [Concomitant]
  15. REGULAR INSULIN [Concomitant]
  16. NARCAN [Concomitant]
  17. MS CONTIN [Concomitant]

REACTIONS (8)
  - ACUTE RESPIRATORY FAILURE [None]
  - CELLULITIS [None]
  - DRUG TOXICITY [None]
  - ECCHYMOSIS [None]
  - GENERAL PHYSICAL HEALTH DETERIORATION [None]
  - HYPOTENSION [None]
  - INFECTION [None]
  - SKIN NECROSIS [None]
